FAERS Safety Report 7096560-5 (Version None)
Quarter: 2010Q4

REPORT INFORMATION
  Report Type: 
  Country: None (occurrence: None)
  Receive Date: 20101111
  Receipt Date: 20101104
  Transmission Date: 20110411
  Serious: Yes (Hospitalization)
  Sender: FDA-Public Use
  Company Number: B0679944A

PATIENT
  Age: 40 Year
  Sex: Female

DRUGS (3)
  1. LAMICTAL [Suspect]
     Indication: EPILEPSY
     Dosage: 150MG PER DAY
     Route: 048
  2. DEPAKENE [Suspect]
     Dosage: 1500MG PER DAY
     Route: 048
  3. ALEVIATIN [Concomitant]
     Dosage: 300MG PER DAY
     Route: 065

REACTIONS (2)
  - DIZZINESS [None]
  - FEELING ABNORMAL [None]
